FAERS Safety Report 5633571-8 (Version None)
Quarter: 2008Q1

REPORT INFORMATION
  Report Type: 
  Country: None (occurrence: None)
  Receive Date: 20080221
  Receipt Date: 20080213
  Transmission Date: 20080703
  Serious: Yes (Other)
  Sender: FDA-Public Use
  Company Number: PHNU2008DE00969

PATIENT
  Sex: Female

DRUGS (4)
  1. MESTINON [Concomitant]
  2. ESTRAMON [Concomitant]
  3. NOVAMINSULFON [Concomitant]
  4. CYCLOSPORINE [Suspect]
     Indication: MUSCULAR WEAKNESS

REACTIONS (1)
  - PORTAL VEIN OCCLUSION [None]
